FAERS Safety Report 7540118-8 (Version None)
Quarter: 2011Q2

REPORT INFORMATION
  Report Type: 
  Country: None (occurrence: None)
  Receive Date: 20110610
  Receipt Date: 20110608
  Transmission Date: 20111010
  Serious: No
  Sender: FDA-Public Use
  Company Number: US-TEVA-285304USA

PATIENT
  Sex: Female
  Weight: 59.02 kg

DRUGS (2)
  1. PLAN B ONE-STEP [Suspect]
     Indication: POST COITAL CONTRACEPTION
     Dosage: 1.5 MILLIGRAM;
     Route: 048
     Dates: start: 20110501, end: 20110501
  2. PLAN B ONE-STEP [Suspect]
     Dosage: 1.5 MILLIGRAM;
     Route: 048
     Dates: start: 20110606, end: 20110606

REACTIONS (12)
  - VOMITING [None]
  - DEHYDRATION [None]
  - MENSTRUATION IRREGULAR [None]
  - BREAST TENDERNESS [None]
  - BACK PAIN [None]
  - COUGH [None]
  - ABDOMINAL PAIN UPPER [None]
  - FATIGUE [None]
  - EMOTIONAL DISORDER [None]
  - BREAST DISORDER [None]
  - RESTLESSNESS [None]
  - OROPHARYNGEAL PAIN [None]
